FAERS Safety Report 22650243 (Version 1)
Quarter: 2023Q2

REPORT INFORMATION
  Report Type: Spontaneous
  Country: US (occurrence: US)
  Receive Date: 20230628
  Receipt Date: 20230628
  Transmission Date: 20230722
  Serious: Yes (Other)
  Sender: FDA-Public Use
  Company Number: US-PFIZER INC-202300229369

PATIENT
  Age: 48 Year
  Sex: Female

DRUGS (2)
  1. DOXORUBICIN HYDROCHLORIDE [Suspect]
     Active Substance: DOXORUBICIN HYDROCHLORIDE
     Indication: Adrenocortical carcinoma
     Dosage: 30 MG/M2 DAILY FOR 3 DAYS
     Route: 040
  2. CISPLATIN [Suspect]
     Active Substance: CISPLATIN
     Indication: Adrenocortical carcinoma
     Dosage: 30 MG/M2 DAILY FOR 3 DAYS
     Route: 042

REACTIONS (2)
  - Clostridium difficile colitis [Recovered/Resolved]
  - Off label use [Unknown]
